FAERS Safety Report 21009248 (Version 2)
Quarter: 2022Q3

REPORT INFORMATION
  Report Type: Other
  Country: PL (occurrence: PL)
  Receive Date: 20220627
  Receipt Date: 20220721
  Transmission Date: 20221027
  Serious: Yes (Other)
  Sender: FDA-Public Use
  Company Number: PL-CELLTRION INC.-2022PL009699

PATIENT

DRUGS (2)
  1. TRASTUZUMAB [Suspect]
     Active Substance: TRASTUZUMAB
     Indication: HER2 positive breast cancer
     Dosage: UNK
  2. PERJETA [Suspect]
     Active Substance: PERTUZUMAB
     Indication: HER2 positive breast cancer

REACTIONS (2)
  - Myocardial infarction [Unknown]
  - Ejection fraction decreased [Unknown]
